FAERS Safety Report 5171284-X (Version None)
Quarter: 2006Q4

REPORT INFORMATION
  Report Type: 
  Country: None (occurrence: None)
  Receive Date: 20061213
  Receipt Date: 20060621
  Transmission Date: 20070319
  Serious: Yes (Other)
  Sender: FDA-Public Use
  Company Number: US-AMGEN-KDL183882

PATIENT
  Sex: Female

DRUGS (3)
  1. ENBREL [Suspect]
     Indication: RHEUMATOID ARTHRITIS
     Route: 058
     Dates: start: 20051101, end: 20060701
  2. PREDNISONE TAB [Concomitant]
  3. OXYCODONE HCL [Concomitant]

REACTIONS (1)
  - MULTIPLE MYELOMA [None]
